FAERS Safety Report 9766081 (Version 1)
Quarter: 2013Q4

REPORT INFORMATION
  Report Type: Spontaneous
  Country: US (occurrence: US)
  Receive Date: 20131217
  Receipt Date: 20131217
  Transmission Date: 20140711
  Serious: No
  Sender: FDA-Public Use
  Company Number: US-GLAXOSMITHKLINE-A1018307A

PATIENT
  Age: 59 Year
  Sex: Female
  Weight: 56.8 kg

DRUGS (3)
  1. VOTRIENT [Suspect]
     Indication: PRODUCT USED FOR UNKNOWN INDICATION
     Dosage: 800MG PER DAY
     Route: 048
  2. LORAZEPAM [Concomitant]
  3. SYNTHROID [Concomitant]

REACTIONS (2)
  - Stomatitis [Unknown]
  - Sinusitis [Unknown]
